FAERS Safety Report 12175051 (Version 1)
Quarter: 2016Q1

REPORT INFORMATION
  Report Type: Spontaneous
  Country: US (occurrence: US)
  Receive Date: 20160314
  Receipt Date: 20160314
  Transmission Date: 20160526
  Serious: No
  Sender: FDA-Public Use
  Company Number: US-009507513-1603USA001769

PATIENT
  Sex: Female

DRUGS (3)
  1. JANUMET [Suspect]
     Active Substance: METFORMIN HYDROCHLORIDE\SITAGLIPTIN PHOSPHATE
     Route: 048
  2. LANTUS [Suspect]
     Active Substance: INSULIN GLARGINE
  3. NOVOLOG MIX 70/30 [Suspect]
     Active Substance: INSULIN ASPART

REACTIONS (1)
  - Blood glucose fluctuation [Unknown]
